FAERS Safety Report 8433401-5 (Version None)
Quarter: 2012Q2

REPORT INFORMATION
  Report Type: 
  Country: None (occurrence: None)
  Receive Date: 20120323
  Receipt Date: 20110907
  Transmission Date: 20120825
  Serious: Yes (Other)
  Sender: FDA-Public Use
  Company Number: 163-21880-11070843

PATIENT
  Age: 68 Year
  Sex: Female

DRUGS (3)
  1. EPOETIN ALFPHA (EPOETIN ALFA) (UNKNOWN) [Concomitant]
  2. LEUKO DEPLETED PACKE RED CELLS (RED BLOOD CELLS, LEUCOCYTE DEPLETED) ( [Concomitant]
  3. REVLIMID [Suspect]
     Indication: MYELODYSPLASTIC SYNDROME
     Dosage: 5 MG, QD X 21 DAYS, 7 DAYS OFF, PO
     Route: 048
     Dates: start: 20110628, end: 20110718

REACTIONS (5)
  - FULL BLOOD COUNT DECREASED [None]
  - PRURITUS [None]
  - HAEMOGLOBIN DECREASED [None]
  - ACNE [None]
  - NAUSEA [None]
